FAERS Safety Report 6437265-0 (Version None)
Quarter: 2009Q4

REPORT INFORMATION
  Report Type: 
  Country: None (occurrence: None)
  Receive Date: 20091112
  Receipt Date: 20091021
  Transmission Date: 20100525
  Serious: No
  Sender: FDA-Public Use
  Company Number: JP-ROCHE-665359

PATIENT

DRUGS (1)
  1. TAMIFLU [Suspect]
     Indication: DRUG USE FOR UNKNOWN INDICATION
     Dosage: DOSE: UNKNOWN. DRUG NAME: TAMIFLU DRY SYRUP 3%. THERAPY DURATION: 3 DAYS.
     Route: 048

REACTIONS (1)
  - ACCIDENTAL OVERDOSE [None]
